FAERS Safety Report 18512558 (Version 3)
Quarter: 2021Q2

REPORT INFORMATION
  Report Type: Report from Study
  Country: US (occurrence: US)
  Receive Date: 20201117
  Receipt Date: 20210615
  Transmission Date: 20210717
  Serious: Yes (Hospitalization, Other)
  Sender: FDA-Public Use
  Company Number: US-TAKEDA1-US202027811AA

PATIENT
  Age: 9 Year
  Sex: Male

DRUGS (2)
  1. VELAGLUCERASE ALFA [Suspect]
     Active Substance: VELAGLUCERASE ALFA
     Indication: IMMUNE SYSTEM DISORDER
  2. VELAGLUCERASE ALFA [Suspect]
     Active Substance: VELAGLUCERASE ALFA
     Indication: GAUCHER^S DISEASE
     Dosage: 2400 INTERNATIONAL UNIT, Q2WEEKS
     Route: 042
     Dates: start: 20190523

REACTIONS (3)
  - Product dose omission issue [Unknown]
  - Pneumonia [Unknown]
  - Product availability issue [Unknown]

NARRATIVE: CASE EVENT DATE: 20200822
